FAERS Safety Report 7059695-9 (Version None)
Quarter: 2010Q4

REPORT INFORMATION
  Report Type: 
  Country: None (occurrence: None)
  Receive Date: 20101025
  Receipt Date: 20101013
  Transmission Date: 20110411
  Serious: Yes (Other)
  Sender: FDA-Public Use
  Company Number: GB-ACTELION-A-CH2010-40631

PATIENT
  Age: 35 Year
  Sex: Female
  Weight: 67.2 kg

DRUGS (1)
  1. MIGLUSTAT CAPSULE 100 MG EU [Suspect]
     Indication: GAUCHER'S DISEASE
     Dosage: 100 MG, TID
     Route: 048
     Dates: start: 20080606

REACTIONS (2)
  - CELL MARKER INCREASED [None]
  - CHITOTRIOSIDASE INCREASED [None]
